FAERS Safety Report 15856632 (Version 2)
Quarter: 2019Q1

REPORT INFORMATION
  Report Type: Spontaneous
  Country: US (occurrence: US)
  Receive Date: 20190123
  Receipt Date: 20190201
  Transmission Date: 20190417
  Serious: No
  Sender: FDA-Public Use
  Company Number: US-AMGEN-USASP2019009189

PATIENT
  Sex: Female

DRUGS (2)
  1. ENBREL [Suspect]
     Active Substance: ETANERCEPT
     Dosage: 50 MG, QWK
     Route: 058
     Dates: start: 201901
  2. ENBREL [Suspect]
     Active Substance: ETANERCEPT
     Indication: SUBSTANCE USE
     Dosage: 50 MG, UNK
     Route: 065
     Dates: end: 201811

REACTIONS (3)
  - Off label use [Unknown]
  - Surgery [Not Recovered/Not Resolved]
  - Ill-defined disorder [Unknown]
